FAERS Safety Report 14599980 (Version 1)
Quarter: 2018Q1

REPORT INFORMATION
  Report Type: Report from Study
  Country: US (occurrence: US)
  Receive Date: 20180305
  Receipt Date: 20180305
  Transmission Date: 20180509
  Serious: Yes (Death, Other)
  Sender: FDA-Public Use
  Company Number: US-PFIZER INC-2018086252

PATIENT
  Age: 42 Year
  Sex: Female

DRUGS (2)
  1. PROVERA [Suspect]
     Active Substance: MEDROXYPROGESTERONE ACETATE
     Indication: BREAST CANCER
  2. PROVERA [Suspect]
     Active Substance: MEDROXYPROGESTERONE ACETATE
     Indication: METASTASES TO BONE
     Dosage: 200 MG, DAILY
     Route: 048
     Dates: start: 19610726, end: 19610914

REACTIONS (2)
  - Product use in unapproved indication [Unknown]
  - Hypercalcaemia [Recovered/Resolved]
